FAERS Safety Report 13708829 (Version 2)
Quarter: 2017Q3

REPORT INFORMATION
  Report Type: Report from Study
  Country: GB (occurrence: US)
  Receive Date: 20170630
  Receipt Date: 20170706
  Transmission Date: 20171127
  Serious: No
  Sender: FDA-Public Use
  Company Number: GB-ANTARES PHARMA, INC.-2017-POS-SU-0136

PATIENT
  Age: 42 Year
  Sex: Female

DRUGS (1)
  1. SUMATRIPTAN. [Suspect]
     Active Substance: SUMATRIPTAN
     Indication: MIGRAINE
     Route: 058

REACTIONS (2)
  - Abdominal distension [Unknown]
  - Joint stiffness [Unknown]
